FAERS Safety Report 9820853 (Version 2)
Quarter: 2014Q1

REPORT INFORMATION
  Report Type: Spontaneous
  Country: US (occurrence: US)
  Receive Date: 20140116
  Receipt Date: 20140123
  Transmission Date: 20141002
  Serious: Yes (Hospitalization, Other)
  Sender: FDA-Public Use
  Company Number: PHEH2014US000943

PATIENT
  Age: 73 Year
  Sex: Female

DRUGS (12)
  1. TASIGNA [Suspect]
     Indication: CHRONIC MYELOID LEUKAEMIA
     Dosage: 150 MG, BID
     Route: 048
  2. ZIAC                               /01166101/ [Concomitant]
     Dosage: 10-6.25 MG TABLETS
     Route: 048
     Dates: start: 20120924, end: 20131030
  3. MULTI-VIT [Concomitant]
     Dosage: UNK
     Route: 048
     Dates: start: 20120924, end: 20131030
  4. NORVASC [Concomitant]
     Dosage: 10 MG, QD
     Route: 048
     Dates: start: 20120924, end: 20131030
  5. ASPIRIN [Concomitant]
     Dosage: 81 MG, QD
     Route: 048
     Dates: start: 20120924, end: 20131030
  6. K-DUR [Concomitant]
     Dosage: 20 MG, BID
     Route: 048
     Dates: start: 20120924, end: 20131030
  7. TENORMIN [Concomitant]
     Dosage: 25 MG, QD
     Route: 048
     Dates: start: 20120924, end: 20131030
  8. NASONEX [Concomitant]
     Dosage: UNK
     Route: 045
     Dates: start: 20120924
  9. SYNTHROID [Concomitant]
     Dosage: 0.112 MG
     Route: 048
     Dates: start: 20120924
  10. LOSARTAN [Concomitant]
     Dosage: 50 MG, QD
     Route: 048
     Dates: start: 20120924
  11. FISH OIL [Concomitant]
     Dosage: 1000 MG, BID
     Route: 048
     Dates: start: 20120924
  12. NIZORAL [Concomitant]
     Dosage: AS NEEDED PRN
     Route: 048
     Dates: start: 20120924

REACTIONS (2)
  - Bundle branch block left [Recovering/Resolving]
  - Chest pain [Recovering/Resolving]
